FAERS Safety Report 6635715-8 (Version None)
Quarter: 2010Q1

REPORT INFORMATION
  Report Type: 
  Country: None (occurrence: None)
  Receive Date: 20100312
  Receipt Date: 20100312
  Transmission Date: 20100710
  Serious: Yes (Other)
  Sender: FDA-Public Use
  Company Number: None

PATIENT
  Age: 75 Year
  Sex: Female
  Weight: 65.318 kg

DRUGS (2)
  1. TOBRAMYCIN [Suspect]
     Indication: PNEUMONIA BACTERIAL
     Dosage: 160MG 2XDAY IV DRIP
     Route: 041
     Dates: start: 20100114, end: 20100114
  2. CEFEPIME [Suspect]
     Indication: PNEUMONIA BACTERIAL
     Dosage: 1GM 1XDAY IV BOLUS
     Route: 040
     Dates: start: 20100114, end: 20100114

REACTIONS (2)
  - DEAFNESS [None]
  - TINNITUS [None]
